FAERS Safety Report 22389267 (Version 2)
Quarter: 2023Q2

REPORT INFORMATION
  Report Type: Spontaneous
  Country: US (occurrence: US)
  Receive Date: 20230531
  Receipt Date: 20230531
  Transmission Date: 20230721
  Serious: No
  Sender: FDA-Public Use
  Company Number: US-Dermavant-000608

PATIENT
  Age: 67 Year
  Sex: Male

DRUGS (3)
  1. VTAMA [Suspect]
     Active Substance: TAPINAROF
     Dosage: VTAMA STARTED ON MID APRIL-2023
     Dates: start: 202304
  2. SKYRIZI [Concomitant]
     Active Substance: RISANKIZUMAB-RZAA
     Dosage: SECOND DOSE IS 05-FEB-2023, THEN ONCE EVERY 3 MONTHS
  3. REPATHA [Concomitant]
     Active Substance: EVOLOCUMAB

REACTIONS (1)
  - Dry skin [Not Recovered/Not Resolved]

NARRATIVE: CASE EVENT DATE: 20230420
